FAERS Safety Report 5166787-8 (Version None)
Quarter: 2006Q4

REPORT INFORMATION
  Report Type: 
  Country: None (occurrence: None)
  Receive Date: 20061129
  Receipt Date: 20061120
  Transmission Date: 20070319
  Serious: Yes (Life-Threatening)
  Sender: FDA-Public Use
  Company Number: 2006-150638-NL

PATIENT
  Sex: Female

DRUGS (4)
  1. PUREGON [Suspect]
     Indication: OVARIAN DISORDER
     Dosage: 200 IU QD SUBCUTANEOUS
     Route: 058
  2. CHORIONIC GONADOTROPIN [Suspect]
     Indication: OVULATION INDUCTION
     Dosage: INTRAMUSCULAR
     Route: 030
  3. ORGALUTRAN [Concomitant]
  4. PROGESTERONE [Concomitant]

REACTIONS (1)
  - OVARIAN TORSION [None]
